FAERS Safety Report 13614095 (Version 10)
Quarter: 2020Q3

REPORT INFORMATION
  Report Type: Spontaneous
  Country: JP (occurrence: JP)
  Receive Date: 20170606
  Receipt Date: 20200827
  Transmission Date: 20201102
  Serious: Yes (Hospitalization, Other)
  Sender: FDA-Public Use
  Company Number: JP-009507513-1705JPN000803J

PATIENT
  Age: 62 Year
  Sex: Male
  Weight: 62 kg

DRUGS (9)
  1. PURSENNID [Concomitant]
     Indication: NON-SMALL CELL LUNG CANCER
     Dosage: 24 MG, QD
     Route: 048
     Dates: start: 20170411, end: 20170530
  2. MUCODYNE [Concomitant]
     Active Substance: CARBOCYSTEINE
     Indication: NON-SMALL CELL LUNG CANCER
     Dosage: 500 MG, TID
     Route: 048
     Dates: start: 20170320, end: 20170530
  3. MAGMITT [Concomitant]
     Active Substance: MAGNESIUM OXIDE
     Indication: NON-SMALL CELL LUNG CANCER
     Dosage: 330 MG, TID
     Route: 048
     Dates: start: 20170320, end: 20170530
  4. ZOSYN [Concomitant]
     Active Substance: PIPERACILLIN SODIUM\TAZOBACTAM SODIUM
     Indication: NON-SMALL CELL LUNG CANCER
     Dosage: 4.5 DOSAGE FORM, TID
     Route: 041
     Dates: start: 20170506, end: 20170510
  5. CRAVIT [Concomitant]
     Active Substance: LEVOFLOXACIN
     Indication: NON-SMALL CELL LUNG CANCER
     Dosage: 500 MG, QD (ALSO REPORTED AS 500MG, UNK)
     Route: 048
     Dates: start: 20170510, end: 20170517
  6. COLDRIN [Concomitant]
     Active Substance: ACETAMINOPHEN\PSEUDOEPHEDRINE HYDROCHLORIDE
     Indication: NON-SMALL CELL LUNG CANCER
     Dosage: 25 MG, TID
     Route: 048
     Dates: start: 20170411, end: 20170530
  7. KEYTRUDA [Suspect]
     Active Substance: PEMBROLIZUMAB
     Indication: NON-SMALL CELL LUNG CANCER
     Dosage: 200 MG, Q3W
     Route: 041
     Dates: start: 20170502, end: 20170523
  8. MUCOSOLVAN L [Concomitant]
     Active Substance: AMBROXOL HYDROCHLORIDE
     Indication: NON-SMALL CELL LUNG CANCER
     Dosage: 45 MG, QD
     Route: 048
     Dates: start: 20170411, end: 20170530
  9. CODEINE PHOSPHATE HYDRATE [Concomitant]
     Active Substance: CODEINE PHOSPHATE
     Indication: NON-SMALL CELL LUNG CANCER
     Dosage: 20 MG, PRN
     Route: 048
     Dates: start: 20170503, end: 20170530

REACTIONS (5)
  - Stevens-Johnson syndrome [Recovered/Resolved]
  - Tumour associated fever [Recovered/Resolved]
  - Liver disorder [Recovered/Resolved]
  - Keratitis [Recovered/Resolved with Sequelae]
  - Pyrexia [Recovered/Resolved]

NARRATIVE: CASE EVENT DATE: 20170508
